FAERS Safety Report 4360151-7 (Version None)
Quarter: 2004Q2

REPORT INFORMATION
  Report Type: 
  Country: None (occurrence: None)
  Receive Date: 20040519
  Receipt Date: 20030922
  Transmission Date: 20050107
  Serious: Yes (Hospitalization, Other)
  Sender: FDA-Public Use
  Company Number: PHEH2003US08694

PATIENT
  Age: 77 Year
  Sex: Female

DRUGS (9)
  1. WARFARIN SODIUM [Concomitant]
  2. FUROSEMIDE [Concomitant]
  3. K-DUR 10 [Concomitant]
  4. DIGOXIN [Concomitant]
  5. CARDIZEM [Concomitant]
  6. VERAPAMIL [Concomitant]
  7. AREDIA [Suspect]
     Indication: METASTASES TO BONE
     Dosage: 90 MG, Q4WKS
     Route: 042
     Dates: start: 19910928, end: 20030405
  8. TAXOTERE [Concomitant]
  9. EPOGEN [Concomitant]

REACTIONS (24)
  - BONE DEVELOPMENT ABNORMAL [None]
  - BONE INFECTION [None]
  - FRACTURE REDUCTION [None]
  - HYPOAESTHESIA ORAL [None]
  - IMPAIRED HEALING [None]
  - INFECTION [None]
  - JAW DISORDER [None]
  - JAW FRACTURE [None]
  - LYMPHADENOPATHY [None]
  - OEDEMA [None]
  - ORAL DISCHARGE [None]
  - ORAL PAIN [None]
  - OSTEOLYSIS [None]
  - OSTEONECROSIS [None]
  - PARAESTHESIA ORAL [None]
  - PURULENCE [None]
  - PYREXIA [None]
  - RADIATION INJURY [None]
  - SEQUESTRECTOMY [None]
  - SWELLING [None]
  - TOOTH DISORDER [None]
  - TOOTH EXTRACTION [None]
  - TRISMUS [None]
  - WHITE BLOOD CELL COUNT INCREASED [None]
